FAERS Safety Report 7988524-1 (Version None)
Quarter: 2011Q4

REPORT INFORMATION
  Report Type: 
  Country: None (occurrence: None)
  Receive Date: 20111218
  Receipt Date: 20111213
  Transmission Date: 20120403
  Serious: Yes (Hospitalization)
  Sender: FDA-Public Use
  Company Number: US-VERTEX PHARMACEUTICALS INC.-AE-2011-004948

PATIENT
  Sex: Male

DRUGS (3)
  1. INCIVEK [Suspect]
     Indication: HEPATITIS C
     Dates: end: 20111209
  2. INTERFERON [Concomitant]
     Indication: HEPATITIS C
     Dates: end: 20111209
  3. RIBAVIRIN [Concomitant]
     Indication: HEPATITIS C
     Dates: end: 20111209

REACTIONS (3)
  - HEART RATE INCREASED [None]
  - PYREXIA [None]
  - DRUG RASH WITH EOSINOPHILIA AND SYSTEMIC SYMPTOMS [None]
